FAERS Safety Report 13456475 (Version 2)
Quarter: 2017Q2

REPORT INFORMATION
  Report Type: Report from Study
  Country: US (occurrence: US)
  Receive Date: 20170418
  Receipt Date: 20170510
  Transmission Date: 20170830
  Serious: Yes (Other)
  Sender: FDA-Public Use
  Company Number: US-JAZZ-2017-US-004113

PATIENT
  Sex: Female

DRUGS (35)
  1. BYSTOLIC [Concomitant]
     Active Substance: NEBIVOLOL HYDROCHLORIDE
  2. CLEOCIN [Concomitant]
     Active Substance: CLINDAMYCIN PHOSPHATE
  3. HYOMAX [Concomitant]
     Active Substance: HYOSCYAMINE SULFATE
  4. XYREM [Suspect]
     Active Substance: SODIUM OXYBATE
     Indication: NARCOLEPSY
     Dosage: 3 G, BID
     Route: 048
     Dates: start: 201105, end: 201111
  5. CHOLESTYRAMINE. [Concomitant]
     Active Substance: CHOLESTYRAMINE
  6. PREDNISONE. [Concomitant]
     Active Substance: PREDNISONE
  7. ALMOTRIPTAN MALATE. [Concomitant]
     Active Substance: ALMOTRIPTAN MALATE
  8. SAVELLA [Concomitant]
     Active Substance: MILNACIPRAN HYDROCHLORIDE
  9. CLARITIN [Concomitant]
     Active Substance: LORATADINE
  10. XYREM [Suspect]
     Active Substance: SODIUM OXYBATE
     Dosage: DOSE ADJUSTMENT
     Route: 048
     Dates: start: 2011, end: 2016
  11. ISOMETHEPTENE DICHLORAL APAP [Concomitant]
  12. XYREM [Suspect]
     Active Substance: SODIUM OXYBATE
     Dosage: 5.25 G, BID
     Route: 048
     Dates: start: 201610
  13. BISOPROLOL FUMARATE. [Concomitant]
     Active Substance: BISOPROLOL FUMARATE
  14. DICLOFENAC SODIUM. [Concomitant]
     Active Substance: DICLOFENAC SODIUM
  15. ZOMIG [Concomitant]
     Active Substance: ZOLMITRIPTAN
  16. CYCLOBENZAPRINE. [Concomitant]
     Active Substance: CYCLOBENZAPRINE
  17. MAXALT-MLT [Concomitant]
     Active Substance: RIZATRIPTAN BENZOATE
  18. TOPIRAMATE. [Concomitant]
     Active Substance: TOPIRAMATE
  19. XYREM [Suspect]
     Active Substance: SODIUM OXYBATE
     Dosage: 3G, BID
     Route: 048
     Dates: start: 201105, end: 2011
  20. XYREM [Suspect]
     Active Substance: SODIUM OXYBATE
     Dosage: 5.25G, BID
     Route: 048
     Dates: start: 2016
  21. NORCO [Concomitant]
     Active Substance: ACETAMINOPHEN\HYDROCODONE BITARTRATE
  22. LYRICA [Concomitant]
     Active Substance: PREGABALIN
  23. VITAMIN D3 [Concomitant]
     Active Substance: CHOLECALCIFEROL
  24. METAXALONE. [Concomitant]
     Active Substance: METAXALONE
  25. TIZANIDINE. [Concomitant]
     Active Substance: TIZANIDINE
  26. INDOMETHACIN                       /00003801/ [Concomitant]
     Active Substance: INDOMETHACIN
  27. LO LOESTRIN FE [Concomitant]
     Active Substance: ETHINYL ESTRADIOL\NORETHINDRONE ACETATE
  28. TRINTELLIX [Concomitant]
     Active Substance: VORTIOXETINE HYDROBROMIDE
  29. ZOLPIDEM TARTRATE. [Concomitant]
     Active Substance: ZOLPIDEM TARTRATE
  30. FLECTOR                            /00372302/ [Concomitant]
     Active Substance: DICLOFENAC SODIUM
  31. ASTEPRO [Concomitant]
     Active Substance: AZELASTINE HYDROCHLORIDE
  32. ALPRAZOLAM. [Concomitant]
     Active Substance: ALPRAZOLAM
  33. CYMBALTA [Concomitant]
     Active Substance: DULOXETINE HYDROCHLORIDE
  34. PROTONIX                           /00661201/ [Concomitant]
     Active Substance: OMEPRAZOLE
  35. METHOTREXATE. [Concomitant]
     Active Substance: METHOTREXATE

REACTIONS (4)
  - Autoimmune disorder [Unknown]
  - Malaise [Not Recovered/Not Resolved]
  - Disease progression [Unknown]
  - Confusional state [Unknown]

NARRATIVE: CASE EVENT DATE: 2016
